FAERS Safety Report 7746357-5 (Version None)
Quarter: 2011Q3

REPORT INFORMATION
  Report Type: 
  Country: None (occurrence: None)
  Receive Date: 20110913
  Receipt Date: 20110907
  Transmission Date: 20111222
  Serious: Yes (Hospitalization)
  Sender: FDA-Public Use
  Company Number: FR-ROCHE-801317

PATIENT
  Sex: Female

DRUGS (6)
  1. TRAMADOL HCL [Suspect]
     Dosage: FREQUENCY: DAILY
     Route: 048
  2. NEORAL [Suspect]
     Route: 048
     Dates: start: 20110728, end: 20110803
  3. NEORAL [Suspect]
     Dosage: FREQUENCY: DAILY
     Route: 048
     Dates: start: 20110809, end: 20110823
  4. MYCOPHENOLATE MOFETIL (CELLCEPT) [Suspect]
     Route: 048
     Dates: start: 20110722
  5. VALGANCICLOVIR [Suspect]
     Route: 048
     Dates: start: 20110722, end: 20110724
  6. FLUCONAZOLE [Suspect]
     Route: 065
     Dates: start: 20110722

REACTIONS (1)
  - OPSOCLONUS MYOCLONUS [None]
